FAERS Safety Report 7331622-6 (Version None)
Quarter: 2011Q1

REPORT INFORMATION
  Report Type: 
  Country: None (occurrence: None)
  Receive Date: 20110228
  Receipt Date: 20110228
  Transmission Date: 20110831
  Serious: Yes (Hospitalization, Other)
  Sender: FDA-Public Use
  Company Number: None

PATIENT

DRUGS (1)
  1. LYRICA [Suspect]
     Dosage: 50 MG

REACTIONS (11)
  - BALANCE DISORDER [None]
  - FATIGUE [None]
  - IRRITABILITY [None]
  - MUSCULAR WEAKNESS [None]
  - SKIN IRRITATION [None]
  - DIALYSIS [None]
  - URINARY INCONTINENCE [None]
  - PANIC ATTACK [None]
  - INSOMNIA [None]
  - FALL [None]
  - PALPITATIONS [None]
